FAERS Safety Report 6067976-0 (Version None)
Quarter: 2009Q1

REPORT INFORMATION
  Report Type: 
  Country: None (occurrence: None)
  Receive Date: 20090206
  Receipt Date: 20090128
  Transmission Date: 20090719
  Serious: Yes (Hospitalization)
  Sender: FDA-Public Use
  Company Number: PL-JNJFOC-20090106656

PATIENT
  Sex: Female
  Weight: 94 kg

DRUGS (10)
  1. ZALDIAR [Suspect]
     Indication: NEUROPATHY PERIPHERAL
     Route: 048
  2. POLTRAM RETARD [Suspect]
     Indication: NEUROPATHY PERIPHERAL
     Route: 048
  3. VENLAFAXINE HYDROCHLORIDE [Suspect]
     Indication: NEUROPATHY PERIPHERAL
     Route: 048
  4. POLTRAM RETARD [Suspect]
     Route: 048
  5. GLICLAZIDE [Concomitant]
     Route: 065
  6. SIOFOR [Concomitant]
     Route: 065
  7. SIMVASTATIN [Concomitant]
     Route: 065
  8. PRESTARIUM [Concomitant]
     Route: 065
  9. ACARD [Concomitant]
     Route: 065
  10. VESSEL DUE F [Concomitant]
     Route: 065

REACTIONS (5)
  - ABDOMINAL PAIN [None]
  - CHILLS [None]
  - DIARRHOEA [None]
  - NAUSEA [None]
  - PYREXIA [None]
